FAERS Safety Report 9696729 (Version 1)
Quarter: 2013Q4

REPORT INFORMATION
  Report Type: Spontaneous
  Country: US (occurrence: US)
  Receive Date: 20131119
  Receipt Date: 20131119
  Transmission Date: 20140711
  Serious: No
  Sender: FDA-Public Use
  Company Number: US-GILEAD-2007-0014420

PATIENT
  Sex: Female
  Weight: 104.33 kg

DRUGS (7)
  1. LETAIRIS [Suspect]
     Indication: PULMONARY ARTERIAL HYPERTENSION
     Route: 048
  2. HYZAAR [Concomitant]
     Route: 048
  3. SYNTHROID [Concomitant]
     Route: 048
  4. ASPIRIN [Concomitant]
     Route: 048
  5. NORETHINDRONE [Concomitant]
     Route: 048
  6. VITAMIN B-12 [Concomitant]
     Route: 048
  7. XOLAIR [Concomitant]
     Route: 058

REACTIONS (1)
  - Hypotension [Unknown]
